FAERS Safety Report 17677402 (Version 1)
Quarter: 2020Q2

REPORT INFORMATION
  Report Type: Spontaneous
  Country: FR (occurrence: FR)
  Receive Date: 20200416
  Receipt Date: 20200416
  Transmission Date: 20200714
  Serious: Yes (Hospitalization, Other)
  Sender: FDA-Public Use
  Company Number: FR-JNJFOC-20200415423

PATIENT
  Age: 66 Year
  Sex: Female

DRUGS (2)
  1. RIVAROXABAN [Suspect]
     Active Substance: RIVAROXABAN
     Indication: PRODUCT USED FOR UNKNOWN INDICATION
     Dosage: 15 MG, QD
     Route: 048
     Dates: start: 201812
  2. HYDROXYCHLOROQUINE [Concomitant]
     Active Substance: HYDROXYCHLOROQUINE
     Dosage: UNK

REACTIONS (7)
  - Renal infarct [Recovered/Resolved with Sequelae]
  - Thrombosis [Unknown]
  - Haemorrhagic adrenal infarction [Recovered/Resolved with Sequelae]
  - Troponin increased [Recovered/Resolved with Sequelae]
  - Cardiac failure [Recovered/Resolved with Sequelae]
  - Ventricular hypokinesia [Recovered/Resolved with Sequelae]
  - Livedo reticularis [Recovered/Resolved with Sequelae]

NARRATIVE: CASE EVENT DATE: 201812
